FAERS Safety Report 9281372 (Version 1)
Quarter: 2013Q2

REPORT INFORMATION
  Report Type: Spontaneous
  Country: GB (occurrence: GB)
  Receive Date: 20130509
  Receipt Date: 20130509
  Transmission Date: 20140414
  Serious: Yes (Hospitalization)
  Sender: FDA-Public Use
  Company Number: GB-AMGEN-GBRSP2013032561

PATIENT
  Age: 18 Year
  Sex: Male
  Weight: 81 kg

DRUGS (2)
  1. ENBREL [Suspect]
     Indication: PSORIASIS
     Dosage: 50 MG, WEEKLY
     Route: 058
     Dates: start: 20111001, end: 20130401
  2. TRIMETHOPRIM [Concomitant]
     Indication: URETHRITIS
     Dosage: UNK

REACTIONS (7)
  - Weight decreased [Unknown]
  - Pyrexia [Unknown]
  - Chills [Unknown]
  - Malaise [Unknown]
  - Oropharyngeal pain [Unknown]
  - Cough [Unknown]
  - Disseminated tuberculosis [Recovering/Resolving]
